FAERS Safety Report 8920715 (Version 2)
Quarter: 2013Q1

REPORT INFORMATION
  Report Type: Report from Study
  Country: DE (occurrence: DE)
  Receive Date: 20121122
  Receipt Date: 20130129
  Transmission Date: 20140127
  Serious: Yes (Hospitalization)
  Sender: FDA-Public Use
  Company Number: DE-ROCHE-1154152

PATIENT
  Age: 47 Year
  Sex: Female
  Weight: 59 kg

DRUGS (6)
  1. TRASTUZUMAB [Suspect]
     Indication: BREAST CANCER
     Dosage: LOADING DOSE
     Route: 042
     Dates: start: 20121031
  2. TRASTUZUMAB [Suspect]
     Dosage: MAINTANENCE DOSE, DATE OF LAST DOSE PRIOR TO SAE ON 31/OCT/2012
     Route: 042
  3. DOCETAXEL [Suspect]
     Indication: BREAST CANCER
     Dosage: DATE OF LAST DOSE PRIOR TO SAE ON 31/OCT/2012
     Route: 042
     Dates: start: 20121031
  4. DEXAMETHASONE [Concomitant]
     Route: 065
     Dates: start: 20121030, end: 20121102
  5. PLACEBO [Suspect]
     Indication: BREAST CANCER
     Dosage: LOADING DOSE
     Route: 042
     Dates: start: 20121031
  6. PLACEBO [Suspect]
     Dosage: MAINTANANCE DOSE, DATE OF LAST DOSE PRIOR TO SAE ON 31/OCT/2012
     Route: 042

REACTIONS (1)
  - Small intestinal haemorrhage [Recovered/Resolved]
